FAERS Safety Report 25725408 (Version 1)
Quarter: 2025Q3

REPORT INFORMATION
  Report Type: Spontaneous
  Country: JP (occurrence: JP)
  Receive Date: 20250826
  Receipt Date: 20250826
  Transmission Date: 20251021
  Serious: Yes (Hospitalization)
  Sender: ABBVIE
  Company Number: JP-IRONWOOD PHARMACEUTICALS, INC.-IRWD2025002066

PATIENT
  Age: 97 Year
  Sex: Female

DRUGS (1)
  1. LINZESS [Suspect]
     Active Substance: LINACLOTIDE
     Indication: Product used for unknown indication
     Route: 048

REACTIONS (1)
  - Compression fracture [Unknown]
